FAERS Safety Report 7737378-7 (Version None)
Quarter: 2011Q3

REPORT INFORMATION
  Report Type: 
  Country: None (occurrence: None)
  Receive Date: 20110908
  Receipt Date: 20110413
  Transmission Date: 20111222
  Serious: Yes (Other)
  Sender: FDA-Public Use
  Company Number: ZA-BAYER-2011-032249

PATIENT
  Age: 31 Year
  Sex: Female

DRUGS (1)
  1. MIRENA [Suspect]
     Indication: CONTRACEPTION

REACTIONS (10)
  - EMOTIONAL DISORDER [None]
  - DYSPAREUNIA [None]
  - AMNESIA [None]
  - PELVIC PAIN [None]
  - BREAST ATROPHY [None]
  - DEPRESSION [None]
  - PAIN IN EXTREMITY [None]
  - WEIGHT DECREASED [None]
  - MOOD SWINGS [None]
  - VAGINAL HAEMORRHAGE [None]
